FAERS Safety Report 7555970-X (Version None)
Quarter: 2011Q2

REPORT INFORMATION
  Report Type: 
  Country: None (occurrence: None)
  Receive Date: 20110619
  Receipt Date: 20110607
  Transmission Date: 20111010
  Serious: Yes (Hospitalization, Other)
  Sender: FDA-Public Use
  Company Number: US-ELI_LILLY_AND_COMPANY-US201004002927

PATIENT
  Sex: Female

DRUGS (21)
  1. FORTEO [Suspect]
     Indication: OSTEOPOROSIS
     Dosage: 20 UG, DAILY (1/D)
     Route: 065
     Dates: start: 20100401
  2. FORTEO [Suspect]
     Dosage: 20 UG, DAILY (1/D)
  3. PANTOPRAZOLO [Concomitant]
  4. FERROUS                            /00023505/ [Concomitant]
  5. ADVAIR DISKUS 100/50 [Concomitant]
  6. FORTEO [Suspect]
     Dosage: 20 UG, QD
  7. KLOR-CON [Concomitant]
  8. BISOPROLOL FUMARATE [Concomitant]
  9. FORTEO [Suspect]
     Dosage: 20 UG, DAILY (1/D)
  10. FORTEO [Suspect]
     Dosage: 20 UG, QD
  11. ZYFLO [Concomitant]
     Dosage: 600 MG, UNKNOWN
  12. FUROSEMIDE [Concomitant]
  13. SUCRALFATE [Concomitant]
  14. ROPINIROLE [Concomitant]
  15. SPIRIVA [Concomitant]
  16. MUCINEX [Concomitant]
  17. PREDNISONE [Concomitant]
  18. METFORMIN HCL [Concomitant]
  19. QVAR 40 [Concomitant]
  20. ALBUTEROL SULFATE AUTOHALER [Concomitant]
  21. PROVENTIL /00139501/ [Concomitant]

REACTIONS (15)
  - PNEUMONIA [None]
  - TOTAL LUNG CAPACITY DECREASED [None]
  - HOSPITALISATION [None]
  - COUGH [None]
  - DYSPNOEA [None]
  - RALES [None]
  - INJECTION SITE HAEMATOMA [None]
  - FEELING ABNORMAL [None]
  - ASTHENIA [None]
  - INJECTION SITE PAIN [None]
  - UPPER RESPIRATORY TRACT INFECTION [None]
  - NAUSEA [None]
  - BACK PAIN [None]
  - DIARRHOEA [None]
  - MUSCLE SPASMS [None]
